FAERS Safety Report 8959173 (Version 2)
Quarter: 2013Q3

REPORT INFORMATION
  Report Type: Report from Study
  Country: BR (occurrence: BR)
  Receive Date: 20121212
  Receipt Date: 20130801
  Transmission Date: 20140515
  Serious: Yes (Other)
  Sender: FDA-Public Use
  Company Number: BR-BAYER-2012-129212

PATIENT
  Sex: Female

DRUGS (1)
  1. BETAFERON [Suspect]
     Indication: RELAPSING-REMITTING MULTIPLE SCLEROSIS
     Dosage: 1 ML, QOD
     Route: 058
     Dates: start: 2009

REACTIONS (5)
  - Malignant melanoma in situ [Recovered/Resolved]
  - Osteoarthritis [Recovering/Resolving]
  - Oral herpes [Recovered/Resolved]
  - Hyperchlorhydria [None]
  - Gastrooesophageal reflux disease [None]
